FAERS Safety Report 17110451 (Version 1)
Quarter: 2019Q4

REPORT INFORMATION
  Report Type: Report from Study
  Country: US (occurrence: US)
  Receive Date: 20191204
  Receipt Date: 20191204
  Transmission Date: 20200122
  Serious: Yes (Hospitalization, Other)
  Sender: FDA-Public Use
  Company Number: US-GILEAD-2019-0440716

PATIENT
  Age: 69 Year
  Sex: Female

DRUGS (11)
  1. FERROUS [FERROUS FUMARATE] [Concomitant]
  2. IPRATROPIUM [Concomitant]
     Active Substance: IPRATROPIUM
  3. LOSARTAN. [Concomitant]
     Active Substance: LOSARTAN
  4. STIOLTO RESPIMAT [Concomitant]
     Active Substance: OLODATEROL HYDROCHLORIDE\TIOTROPIUM BROMIDE MONOHYDRATE
  5. BENZONATATE. [Concomitant]
     Active Substance: BENZONATATE
  6. IRON [Concomitant]
     Active Substance: IRON
  7. FLUTICASONE. [Concomitant]
     Active Substance: FLUTICASONE
  8. AMBRISENTAN [Suspect]
     Active Substance: AMBRISENTAN
     Indication: PULMONARY HYPERTENSION
     Dosage: 5 MG, QD
     Route: 065
     Dates: start: 20150618
  9. ATORVASTATIN [Concomitant]
     Active Substance: ATORVASTATIN
  10. VENLAFAXINE [Concomitant]
     Active Substance: VENLAFAXINE HYDROCHLORIDE
  11. FLOVENT [Concomitant]
     Active Substance: FLUTICASONE PROPIONATE

REACTIONS (1)
  - Pneumonia [Unknown]
